FAERS Safety Report 6146640-3 (Version None)
Quarter: 2009Q2

REPORT INFORMATION
  Report Type: 
  Country: None (occurrence: None)
  Receive Date: 20090407
  Receipt Date: 20090327
  Transmission Date: 20091009
  Serious: Yes (Hospitalization)
  Sender: FDA-Public Use
  Company Number: US-JNJFOC-20090307605

PATIENT
  Sex: Male
  Weight: 35.3 kg

DRUGS (5)
  1. INFLIXIMAB [Suspect]
     Indication: INFLAMMATORY BOWEL DISEASE
     Dosage: REPORTED AS TREATMENT GREATER THAN 5 YEARS
     Route: 042
  2. HUMIRA [Suspect]
  3. HUMIRA [Suspect]
     Indication: INFLAMMATORY BOWEL DISEASE
  4. METHOTREXATE [Suspect]
     Indication: DRUG USE FOR UNKNOWN INDICATION
  5. FOLIC ACID [Concomitant]

REACTIONS (1)
  - SUBCUTANEOUS ABSCESS [None]
